FAERS Safety Report 6909462-9 (Version None)
Quarter: 2010Q3

REPORT INFORMATION
  Report Type: 
  Country: None (occurrence: None)
  Receive Date: 20100805
  Receipt Date: 20100726
  Transmission Date: 20110219
  Serious: Yes (Other)
  Sender: FDA-Public Use
  Company Number: US-PFIZER INC-2010093391

PATIENT
  Age: 61 Year
  Sex: Male
  Weight: 100 kg

DRUGS (7)
  1. AZITHROMYCIN [Suspect]
     Dosage: 500 MG, 1X/DAY
     Route: 042
  2. PIPERACILLIN AND TAZOBACTAM [Concomitant]
     Indication: PNEUMONIA
     Dosage: 2.25 MG, EVERY 8 HOURS
     Route: 042
  3. CEFTRIAXONE [Concomitant]
     Indication: PNEUMONIA
     Dosage: 1 G, UNK
     Route: 042
  4. AMIODARONE [Concomitant]
     Indication: ATRIAL FIBRILLATION
     Dosage: 700 MG, 1X/DAY
     Route: 042
  5. METOPROLOL [Concomitant]
  6. DIGOXIN [Concomitant]
  7. FUROSEMIDE [Concomitant]

REACTIONS (1)
  - HEPATOTOXICITY [None]
